FAERS Safety Report 17355966 (Version 2)
Quarter: 2020Q1

REPORT INFORMATION
  Report Type: Spontaneous
  Country: FR (occurrence: FR)
  Receive Date: 20200131
  Receipt Date: 20200302
  Transmission Date: 20200409
  Serious: Yes (Hospitalization)
  Sender: FDA-Public Use
  Company Number: FR-PFIZER INC-2020038480

PATIENT
  Age: 14 Year
  Sex: Male

DRUGS (1)
  1. LYRICA CR [Suspect]
     Active Substance: PREGABALIN
     Indication: ALTERED STATE OF CONSCIOUSNESS
     Dosage: 1 TABLET
     Route: 048
     Dates: start: 20191223, end: 20191223

REACTIONS (3)
  - Poisoning deliberate [Recovered/Resolved]
  - Off label use [Unknown]
  - Drug ineffective for unapproved indication [Unknown]

NARRATIVE: CASE EVENT DATE: 20191223
